FAERS Safety Report 7620315-3 (Version None)
Quarter: 2011Q3

REPORT INFORMATION
  Report Type: 
  Country: None (occurrence: None)
  Receive Date: 20110719
  Receipt Date: 20110707
  Transmission Date: 20111222
  Serious: Yes (Hospitalization)
  Sender: FDA-Public Use
  Company Number: PHHY2011TW56207

PATIENT
  Age: 74 Year
  Sex: Female

DRUGS (5)
  1. VALSARTAN [Concomitant]
     Dosage: 160 MG, UNK
  2. METOPROLOL TARTRATE [Concomitant]
     Dosage: 25 MG, UNK
  3. SERTRALINE HYDROCHLORIDE [Suspect]
     Indication: MAJOR DEPRESSION
     Dosage: 50 MG/DAY
  4. ISOSORBIDE DINITRATE [Concomitant]
     Dosage: 40 MG, UNK
  5. INSULIN [Concomitant]
     Route: 058

REACTIONS (12)
  - ENERGY INCREASED [None]
  - MUSCULAR WEAKNESS [None]
  - MANIA [None]
  - INSOMNIA [None]
  - FLIGHT OF IDEAS [None]
  - GRANDIOSITY [None]
  - DRUG WITHDRAWAL SYNDROME [None]
  - DISTRACTIBILITY [None]
  - PSYCHOMOTOR HYPERACTIVITY [None]
  - LOGORRHOEA [None]
  - ELEVATED MOOD [None]
  - GAIT DISTURBANCE [None]
